FAERS Safety Report 5320565-5 (Version None)
Quarter: 2007Q1

REPORT INFORMATION
  Report Type: 
  Country: None (occurrence: None)
  Receive Date: 20070203
  Receipt Date: 20070110
  Transmission Date: 20070707
  Serious: Yes (Other)
  Sender: FDA-Public Use
  Company Number: 33523

PATIENT
  Sex: Female

DRUGS (3)
  1. CARBOPLATIN [Suspect]
     Indication: OVARIAN CANCER
     Dosage: 440MG/IV/Q21DAYS
     Route: 042
     Dates: start: 20061218
  2. CARBOPLATIN [Suspect]
     Indication: OVARIAN CANCER
     Dosage: 440MG/IV/Q21DAYS
     Route: 042
     Dates: start: 20070110
  3. GEMZAR [Concomitant]

REACTIONS (1)
  - HYPERSENSITIVITY [None]
